FAERS Safety Report 5655539-8 (Version None)
Quarter: 2008Q1

REPORT INFORMATION
  Report Type: 
  Country: None (occurrence: None)
  Receive Date: 20080307
  Receipt Date: 20080226
  Transmission Date: 20080703
  Serious: Yes (Life-Threatening, Hospitalization)
  Sender: FDA-Public Use
  Company Number: US-SANOFI-SYNTHELABO-A03200800749

PATIENT
  Age: 59 Year
  Sex: Male

DRUGS (4)
  1. MEDICATIONS FOR HIS DIABETES [Concomitant]
     Indication: DIABETES MELLITUS
     Dosage: UNK
     Route: 065
  2. MEDICATIONS FOR HIS COLITIS [Concomitant]
     Indication: COLITIS
     Dosage: UNK
     Route: 065
  3. MEDICATIONS FOR HIS HEART [Concomitant]
     Indication: CARDIAC DISORDER
     Dosage: UNK
     Route: 065
  4. AMBIEN [Suspect]
     Indication: DRUG USE FOR UNKNOWN INDICATION
     Dosage: 3 DOSES DURING THE PREVIOUS 1 YEAR PERIOD
     Route: 048
     Dates: end: 20080215

REACTIONS (7)
  - AGGRESSION [None]
  - CARDIAC ARREST [None]
  - DELIRIUM [None]
  - DYSARTHRIA [None]
  - HALLUCINATION [None]
  - PYREXIA [None]
  - THROAT TIGHTNESS [None]
